FAERS Safety Report 5192950-6 (Version None)
Quarter: 2006Q4

REPORT INFORMATION
  Report Type: 
  Country: None (occurrence: None)
  Receive Date: 20061228
  Receipt Date: 20060314
  Transmission Date: 20070319
  Serious: No
  Sender: FDA-Public Use
  Company Number: US-GLAXOSMITHKLINE-A0597505A

PATIENT
  Age: 77 Year
  Sex: Female

DRUGS (6)
  1. FLONASE [Suspect]
     Indication: RHINITIS
     Dosage: 2SPR PER DAY
     Route: 045
     Dates: start: 20060307
  2. THEOCHRON [Concomitant]
  3. PREMARIN [Concomitant]
  4. ACTONEL [Concomitant]
  5. LIPITOR [Concomitant]
  6. CALCIUM [Concomitant]

REACTIONS (3)
  - ABDOMINAL PAIN [None]
  - COUGH [None]
  - HEADACHE [None]
